FAERS Safety Report 5320646-6 (Version None)
Quarter: 2007Q2

REPORT INFORMATION
  Report Type: 
  Country: None (occurrence: None)
  Receive Date: 20070502
  Receipt Date: 20070419
  Transmission Date: 20071010
  Serious: Yes (Hospitalization, Disabling)
  Sender: FDA-Public Use
  Company Number: FABR-11928

PATIENT
  Age: 44 Year
  Sex: Male
  Weight: 63 kg

DRUGS (5)
  1. FABRAZYME [Suspect]
     Indication: FABRY'S DISEASE
     Dosage: 70 MG Q2WKS IV
     Route: 042
     Dates: start: 20050524
  2. TYLENOL [Concomitant]
  3. BENADRYL [Concomitant]
  4. KYTRIL [Concomitant]
  5. ARANESP [Concomitant]

REACTIONS (5)
  - BURNING SENSATION [None]
  - LIMB DISCOMFORT [None]
  - PARAESTHESIA [None]
  - RENAL FAILURE [None]
  - RENAL TRANSPLANT [None]
